FAERS Safety Report 7466213-X (Version None)
Quarter: 2011Q2

REPORT INFORMATION
  Report Type: 
  Country: None (occurrence: None)
  Receive Date: 20110505
  Receipt Date: 20110505
  Transmission Date: 20111010
  Serious: No
  Sender: FDA-Public Use
  Company Number: None

PATIENT
  Sex: Female

DRUGS (1)
  1. REVATIO [Suspect]
     Dosage: 20MG BID PO
     Route: 048
     Dates: start: 20110406, end: 20110416

REACTIONS (2)
  - ASTHENIA [None]
  - GAIT DISTURBANCE [None]
